FAERS Safety Report 7226650-5 (Version None)
Quarter: 2011Q1

REPORT INFORMATION
  Report Type: 
  Country: None (occurrence: None)
  Receive Date: 20110110
  Receipt Date: 20110110
  Transmission Date: 20110831
  Serious: No
  Sender: FDA-Public Use
  Company Number: None

PATIENT
  Age: 63 Year
  Sex: Female
  Weight: 72.5755 kg

DRUGS (1)
  1. TOBRAMYCIN OPHTHALMIC 0.3% BAUSCH AND LOMB [Suspect]
     Indication: CONJUNCTIVITIS
     Dosage: 2 DROPS EACH EYE 2 X A DAY OPHTHALMIC
     Route: 047

REACTIONS (2)
  - EYE SWELLING [None]
  - LACRIMATION INCREASED [None]
